FAERS Safety Report 6555900-3 (Version None)
Quarter: 2010Q1

REPORT INFORMATION
  Report Type: 
  Country: None (occurrence: None)
  Receive Date: 20100128
  Receipt Date: 20100118
  Transmission Date: 20100710
  Serious: Yes (Hospitalization, Other)
  Sender: FDA-Public Use
  Company Number: US-JNJFOC-20100110846

PATIENT
  Age: 48 Year
  Sex: Female

DRUGS (13)
  1. HALOPERIDOL [Suspect]
     Indication: SCHIZOPHRENIA
     Route: 048
  2. HALOPERIDOL [Suspect]
     Route: 048
  3. HALOPERIDOL [Suspect]
     Dosage: 2-3 DOSES WEEKLY
     Route: 048
  4. RISPERDAL CONSTA [Suspect]
     Indication: SCHIZOPHRENIA
     Route: 030
  5. VALPROIC ACID [Interacting]
     Indication: DRUG USE FOR UNKNOWN INDICATION
     Route: 048
  6. BENZTROPINE MESYLATE [Suspect]
     Indication: DRUG USE FOR UNKNOWN INDICATION
     Route: 065
  7. QUETIAPINE [Suspect]
     Indication: SCHIZOPHRENIA
     Route: 048
  8. QUETIAPINE [Suspect]
     Route: 048
  9. DIPHENHYDRAMINE [Suspect]
     Indication: DRUG USE FOR UNKNOWN INDICATION
     Route: 065
  10. ROBITUSSIN COLD + COUGH [Suspect]
     Indication: COUGH
     Route: 048
  11. CLONAZEPAM [Suspect]
     Indication: ANXIETY
     Route: 048
  12. CLONAZEPAM [Suspect]
     Route: 048
  13. CLONAZEPAM [Suspect]
     Route: 048

REACTIONS (7)
  - COGNITIVE DISORDER [None]
  - DISORIENTATION [None]
  - DRUG INTERACTION [None]
  - GAIT DISTURBANCE [None]
  - LETHARGY [None]
  - PARANOIA [None]
  - SEDATION [None]
